FAERS Safety Report 14193369 (Version 1)
Quarter: 2017Q4

REPORT INFORMATION
  Report Type: Spontaneous
  Country: US (occurrence: US)
  Receive Date: 20171115
  Receipt Date: 20171115
  Transmission Date: 20180321
  Serious: No
  Sender: FDA-Public Use
  Company Number: US-BAUSCH-BL-2017-001726

PATIENT
  Sex: Female

DRUGS (4)
  1. TETRABENAZINE. [Suspect]
     Active Substance: TETRABENAZINE
     Indication: HUNTINGTON^S DISEASE
     Route: 048
  2. XENAZINE [Suspect]
     Active Substance: TETRABENAZINE
     Route: 048
  3. XENAZINE [Suspect]
     Active Substance: TETRABENAZINE
     Indication: HUNTINGTON^S DISEASE
     Route: 048
     Dates: start: 201105
  4. XENAZINE [Suspect]
     Active Substance: TETRABENAZINE
     Route: 048

REACTIONS (1)
  - Drug ineffective [Unknown]
